FAERS Safety Report 9330191 (Version 1)
Quarter: 2013Q2

REPORT INFORMATION
  Report Type: Spontaneous
  Country: DE (occurrence: DE)
  Receive Date: 20130604
  Receipt Date: 20130604
  Transmission Date: 20140414
  Serious: Yes (Other)
  Sender: FDA-Public Use
  Company Number: DE-B.I. PHARMACEUTICALS,INC./RIDGEFIELD-2012-DE-03054DE

PATIENT
  Sex: Male
  Weight: 88 kg

DRUGS (5)
  1. PRADAXA [Suspect]
     Indication: ATRIAL FIBRILLATION
     Dosage: 220 MG
  2. VERAPAMIL [Concomitant]
  3. TERAZOSIN [Concomitant]
  4. MARCUMAR [Concomitant]
     Indication: ATRIAL FIBRILLATION
     Dates: start: 2002, end: 20120801
  5. MARCUMAR [Concomitant]
     Indication: CEREBROVASCULAR ACCIDENT

REACTIONS (3)
  - Gamma-glutamyltransferase increased [Not Recovered/Not Resolved]
  - Angina pectoris [Not Recovered/Not Resolved]
  - Blood alkaline phosphatase abnormal [Not Recovered/Not Resolved]
